FAERS Safety Report 5335910-4 (Version None)
Quarter: 2007Q2

REPORT INFORMATION
  Report Type: 
  Country: None (occurrence: None)
  Receive Date: 20070302
  Receipt Date: 20070115
  Transmission Date: 20071010
  Serious: No
  Sender: FDA-Public Use
  Company Number: PHEH2007US00933

PATIENT
  Age: 64 Year
  Sex: Male

DRUGS (1)
  1. EXJADE [Suspect]
     Indication: IRON OVERLOAD
     Dosage: 1625 MG, QD, ORAL
     Route: 048
     Dates: start: 20070105, end: 20070110

REACTIONS (3)
  - DIARRHOEA [None]
  - HYPOAESTHESIA ORAL [None]
  - NAUSEA [None]
